FAERS Safety Report 26149965 (Version 1)
Quarter: 2025Q4

REPORT INFORMATION
  Report Type: Spontaneous
  Country: US (occurrence: US)
  Receive Date: 20251212
  Receipt Date: 20251212
  Transmission Date: 20260118
  Serious: No
  Sender: ALCON
  Company Number: US-ALCON LABORATORIES-ALC2025US005608

PATIENT
  Age: 79 Year
  Sex: Female

DRUGS (1)
  1. ACOLTREMON [Suspect]
     Active Substance: ACOLTREMON
     Indication: Product used for unknown indication
     Dosage: UNK
     Route: 047
     Dates: start: 20250923, end: 20251001

REACTIONS (4)
  - Pruritus [Recovering/Resolving]
  - Lip dry [Recovering/Resolving]
  - Lip exfoliation [Recovering/Resolving]
  - Eye irritation [Recovering/Resolving]
